FAERS Safety Report 8141116-6 (Version None)
Quarter: 2012Q1

REPORT INFORMATION
  Report Type: 
  Country: None (occurrence: None)
  Receive Date: 20120103
  Receipt Date: 20110913
  Transmission Date: 20120608
  Serious: No
  Sender: FDA-Public Use
  Company Number: AE-2011-001532

PATIENT
  Age: 45 Year
  Sex: Male

DRUGS (3)
  1. RIBAVIRIN [Concomitant]
  2. INCIVEK [Suspect]
     Dosage: 2250 MG (750 MG,1 IN 8 HR),ORAL
     Route: 048
     Dates: start: 20110812
  3. PEGASYS [Concomitant]

REACTIONS (9)
  - AMNESIA [None]
  - MOOD ALTERED [None]
  - DYSPNOEA [None]
  - VOMITING [None]
  - HAEMORRHOIDS [None]
  - RASH [None]
  - DIARRHOEA [None]
  - ORAL HERPES [None]
  - FATIGUE [None]
